FAERS Safety Report 6417473-5 (Version None)
Quarter: 2009Q4

REPORT INFORMATION
  Report Type: 
  Country: None (occurrence: None)
  Receive Date: 20091028
  Receipt Date: 20090918
  Transmission Date: 20100525
  Serious: No
  Sender: FDA-Public Use
  Company Number: US-BAYER-200933647NA

PATIENT
  Age: 75 Year
  Sex: Female
  Weight: 45 kg

DRUGS (7)
  1. ULTRAVIST 300 [Suspect]
     Indication: ANGIOGRAM
     Dosage: TOTAL DAILY DOSE: 67 ML  UNIT DOSE: 200 ML
     Route: 042
     Dates: start: 20090918, end: 20090918
  2. ASPIRIN [Concomitant]
  3. MIRAPEX [Concomitant]
  4. CARBIDOPA AND LEVODOPA [Concomitant]
  5. PREDNISONE [Concomitant]
     Dosage: AS USED: 50 MG
     Route: 048
     Dates: start: 20090917, end: 20090918
  6. BENADRYL [Concomitant]
     Dosage: AS USED: 50 MG
     Route: 048
     Dates: start: 20090918, end: 20090918
  7. DIGOXIN [Concomitant]

REACTIONS (1)
  - URTICARIA [None]
